FAERS Safety Report 10754758 (Version 1)
Quarter: 2015Q1

REPORT INFORMATION
  Report Type: Spontaneous
  Country: US (occurrence: None)
  Receive Date: 20150130
  Receipt Date: 20150130
  Transmission Date: 20150721
  Serious: Yes (Hospitalization)
  Sender: FDA-Public Use
  Company Number: None

PATIENT
  Age: 19 Year
  Sex: Male
  Weight: 86.5 kg

DRUGS (6)
  1. ONCASPAR [Suspect]
     Active Substance: PEGASPARGASE
     Dates: end: 20150118
  2. METHOTREXATE [Suspect]
     Active Substance: METHOTREXATE
     Dates: end: 20150122
  3. CYTARABINE. [Suspect]
     Active Substance: CYTARABINE
     Dates: end: 20150115
  4. DAUNORUBICIN [Suspect]
     Active Substance: DAUNORUBICIN
     Dates: end: 20150122
  5. VINCRISTINE SULFATE. [Suspect]
     Active Substance: VINCRISTINE SULFATE
     Dates: end: 20150122
  6. PREDNISONE. [Suspect]
     Active Substance: PREDNISONE
     Dates: end: 20150122

REACTIONS (7)
  - Superior sagittal sinus thrombosis [None]
  - Brain midline shift [None]
  - Subarachnoid haemorrhage [None]
  - Head injury [None]
  - Intracranial pressure increased [None]
  - Haemorrhage intracranial [None]
  - Cerebral infarction [None]

NARRATIVE: CASE EVENT DATE: 20150123
